FAERS Safety Report 16470806 (Version 2)
Quarter: 2019Q3

REPORT INFORMATION
  Report Type: Spontaneous
  Country: US (occurrence: US)
  Receive Date: 20190624
  Receipt Date: 20190709
  Transmission Date: 20191004
  Serious: Yes (Hospitalization)
  Sender: FDA-Public Use
  Company Number: US-VERTEX PHARMACEUTICALS-2019-005721

PATIENT
  Age: 15 Year
  Sex: Male
  Weight: 52 kg

DRUGS (26)
  1. LINEZOLID. [Concomitant]
     Active Substance: LINEZOLID
  2. FEXOFENADINE [Concomitant]
     Active Substance: FEXOFENADINE HYDROCHLORIDE
     Dosage: 180 MG, QD
     Route: 048
  3. GLUCAGON EMERGENCY KIT FOR LOW BLOOD SUGAR [Concomitant]
     Dosage: UNK, PRN
  4. CHOLECALCIFEROL [Concomitant]
     Active Substance: CHOLECALCIFEROL
  5. TOBRAMYCIN. [Concomitant]
     Active Substance: TOBRAMYCIN
     Indication: PSEUDOMONAS INFECTION
  6. SYMDEKO [Suspect]
     Active Substance: IVACAFTOR\TEZACAFTOR
     Indication: CYSTIC FIBROSIS
     Dosage: 100MG TEZACAFTOR/ 150MG IVACAFTOR AM; 150 MG IVACAFTOR PM
     Route: 048
     Dates: start: 20190304
  7. SODIUM CHLORIDE. [Concomitant]
     Active Substance: SODIUM CHLORIDE
     Dosage: 7 %, BID, INH
     Route: 055
  8. ADVAIR HFA [Concomitant]
     Active Substance: FLUTICASONE PROPIONATE\SALMETEROL XINAFOATE
     Indication: ASTHMA
  9. VANCOMYCIN [Suspect]
     Active Substance: VANCOMYCIN
     Indication: PRODUCT USED FOR UNKNOWN INDICATION
     Dosage: 2 DOSAGE FORM, BID (INH)
     Route: 055
     Dates: start: 20190502, end: 20190529
  10. FERROUS SULPHATE [FERROUS SULFATE] [Concomitant]
     Active Substance: FERROUS SULFATE
     Dosage: 325 MG, QD
     Route: 048
  11. PERIACTIN [Concomitant]
     Active Substance: CYPROHEPTADINE HYDROCHLORIDE
  12. VITAMIN C [Concomitant]
     Active Substance: ASCORBIC ACID
     Dosage: 500 MG, QD
     Route: 048
  13. GLUCOSE [Concomitant]
     Active Substance: DEXTROSE
     Indication: LOSS OF CONSCIOUSNESS
     Dosage: 1 MG, PRN
  14. LANTUS [Concomitant]
     Active Substance: INSULIN GLARGINE
     Dosage: 10 UT, QHS
     Route: 058
  15. RELIZORB [Concomitant]
     Dosage: 2 CARTRIDGE, QHS
  16. RANITIDINE. [Concomitant]
     Active Substance: RANITIDINE
  17. SODIUM CHLORIDE. [Concomitant]
     Active Substance: SODIUM CHLORIDE
     Dosage: 0.9 % INJ SOL
  18. CREON [Concomitant]
     Active Substance: PANCRELIPASE AMYLASE\PANCRELIPASE LIPASE\PANCRELIPASE PROTEASE
     Dosage: 5 CAPS WITH MEAL, 3 WITH SNACKS
     Route: 048
  19. COLISTIMETHATE [COLISTIMETHATE SODIUM] [Concomitant]
     Dosage: UNK, PRN
  20. NYSTATIN AND TRIAMCINOLONE [Concomitant]
     Active Substance: NYSTATIN\TRIAMCINOLONE ACETONIDE
     Indication: GASTROSTOMY TUBE SITE COMPLICATION
     Dosage: 1 APPLICATION, BID
     Route: 061
  21. GLUCOSE [Concomitant]
     Active Substance: DEXTROSE
     Indication: SEIZURE
  22. CEFTAZIDIME. [Concomitant]
     Active Substance: CEFTAZIDIME
     Indication: PSEUDOMONAS INFECTION
  23. NASONEX [Concomitant]
     Active Substance: MOMETASONE FUROATE
     Indication: HYPERSENSITIVITY
  24. COLISTIN [Concomitant]
     Active Substance: COLISTIN
  25. PULMOZYME [Concomitant]
     Active Substance: DORNASE ALFA
     Dosage: 2.5 MG, QHS
     Route: 055
  26. ZYRTEC [Concomitant]
     Active Substance: CETIRIZINE HYDROCHLORIDE
     Indication: HYPERSENSITIVITY

REACTIONS (2)
  - Viral infection [Recovering/Resolving]
  - Pneumonia staphylococcal [Recovering/Resolving]

NARRATIVE: CASE EVENT DATE: 20190530
